FAERS Safety Report 12930513 (Version 5)
Quarter: 2017Q1

REPORT INFORMATION
  Report Type: Report from Study
  Country: CA (occurrence: CA)
  Receive Date: 20161110
  Receipt Date: 20170127
  Transmission Date: 20170428
  Serious: Yes (Death, Other)
  Sender: FDA-Public Use
  Company Number: CA-JNJFOC-20161109756

PATIENT
  Age: 87 Year
  Sex: Male

DRUGS (3)
  1. IBRUTINIB [Suspect]
     Active Substance: IBRUTINIB
     Indication: CHRONIC LYMPHOCYTIC LEUKAEMIA
     Route: 048
     Dates: start: 20161025, end: 20161114
  2. IBRUTINIB [Suspect]
     Active Substance: IBRUTINIB
     Indication: CHRONIC LYMPHOCYTIC LEUKAEMIA
     Route: 048
     Dates: start: 20161122
  3. IBRUTINIB [Suspect]
     Active Substance: IBRUTINIB
     Indication: CHRONIC LYMPHOCYTIC LEUKAEMIA
     Route: 048
     Dates: start: 20161115, end: 201611

REACTIONS (7)
  - Fatigue [Not Recovered/Not Resolved]
  - Dysuria [Not Recovered/Not Resolved]
  - Epistaxis [Recovered/Resolved]
  - Haemorrhage urinary tract [Fatal]
  - Increased tendency to bruise [Recovering/Resolving]
  - Abdominal pain [Recovering/Resolving]
  - Haemoglobin decreased [Not Recovered/Not Resolved]

NARRATIVE: CASE EVENT DATE: 20161105
